FAERS Safety Report 8338141-9 (Version None)
Quarter: 2012Q2

REPORT INFORMATION
  Report Type: 
  Country: None (occurrence: None)
  Receive Date: 20120504
  Receipt Date: 20120425
  Transmission Date: 20120825
  Serious: Yes (Hospitalization, Other)
  Sender: FDA-Public Use
  Company Number: AT-ASTRAZENECA-2011SE63555

PATIENT
  Age: 57 Year
  Sex: Female

DRUGS (5)
  1. METHOTREXATE [Concomitant]
  2. ARIMIDEX [Suspect]
     Route: 048
     Dates: start: 20070101
  3. FASLODEX [Suspect]
     Indication: BREAST CANCER
     Dosage: MONTHLY
     Route: 030
     Dates: start: 20071001, end: 20100401
  4. NOLVADEX [Suspect]
     Route: 048
     Dates: start: 20050501, end: 20060601
  5. FEMARA [Suspect]
     Indication: BREAST CANCER
     Route: 048
     Dates: start: 20060601, end: 20071001

REACTIONS (1)
  - RETINAL DETACHMENT [None]
